FAERS Safety Report 25415087 (Version 2)
Quarter: 2025Q2

REPORT INFORMATION
  Report Type: Report from Study
  Country: JP (occurrence: JP)
  Receive Date: 20250609
  Receipt Date: 20250612
  Transmission Date: 20250716
  Serious: Yes (Hospitalization)
  Sender: ABBVIE
  Company Number: JP-TAKEDA-2025TJP005348

PATIENT
  Age: 62 Year
  Sex: Male
  Weight: 53.6 kg

DRUGS (5)
  1. LEUPROLIDE ACETATE [Suspect]
     Active Substance: LEUPROLIDE ACETATE
     Indication: Bulbospinal muscular atrophy congenital
     Dosage: 11.25 MILLIGRAM, Q3MONTHS
     Route: 058
     Dates: start: 20200108, end: 20210805
  2. LOXOPROFEN SODIUM [Concomitant]
     Active Substance: LOXOPROFEN SODIUM
     Indication: Bulbospinal muscular atrophy congenital
     Route: 065
     Dates: start: 20210130
  3. Alosenn [Concomitant]
     Indication: Bulbospinal muscular atrophy congenital
     Route: 065
     Dates: start: 20210130
  4. PREGABALIN [Concomitant]
     Active Substance: PREGABALIN
     Indication: Bulbospinal muscular atrophy congenital
     Route: 065
     Dates: start: 20210130
  5. CELECOXIB [Concomitant]
     Active Substance: CELECOXIB
     Indication: Bulbospinal muscular atrophy congenital
     Route: 065
     Dates: start: 20210130

REACTIONS (2)
  - Fracture [Not Recovered/Not Resolved]
  - Gastrostomy [Recovering/Resolving]

NARRATIVE: CASE EVENT DATE: 20230110
